FAERS Safety Report 4387680-4 (Version None)
Quarter: 2004Q2

REPORT INFORMATION
  Report Type: 
  Country: None (occurrence: None)
  Receive Date: 20040630
  Receipt Date: 20040630
  Transmission Date: 20050107
  Serious: Yes (Other)
  Sender: FDA-Public Use
  Company Number: None

PATIENT
  Sex: Female
  Weight: 89.3586 kg

DRUGS (6)
  1. CYCLOBENZAPRINE HCL [Suspect]
     Indication: MUSCLE SPASMS
     Dosage: 10 MG TWO PO TID
     Route: 048
     Dates: start: 19890101
  2. CYCLOBENZAPRINE HCL [Suspect]
     Indication: SYSTEMIC LUPUS ERYTHEMATOSUS
     Dosage: 10 MG TWO PO TID
     Route: 048
     Dates: start: 19890101
  3. HYDROXYCHLOROQUINE SULFATE [Suspect]
     Indication: SYSTEMIC LUPUS ERYTHEMATOSUS
     Dosage: 200 MG ONE PO BID
     Route: 048
     Dates: start: 19890101
  4. . [Concomitant]
  5. . [Concomitant]
  6. . [Concomitant]

REACTIONS (4)
  - DRUG EFFECT DECREASED [None]
  - DYSPEPSIA [None]
  - NAUSEA [None]
  - PHARMACEUTICAL PRODUCT COMPLAINT [None]
